FAERS Safety Report 4530983-0 (Version None)
Quarter: 2004Q4

REPORT INFORMATION
  Report Type: 
  Country: None (occurrence: None)
  Receive Date: 20041217
  Receipt Date: 20041210
  Transmission Date: 20050328
  Serious: Yes (Life-Threatening, Hospitalization, Other)
  Sender: FDA-Public Use
  Company Number: US-MERCK-0412USA01347

PATIENT
  Age: 78 Year
  Sex: Male

DRUGS (6)
  1. VIOXX [Suspect]
     Indication: ARTHRITIS
     Route: 048
     Dates: start: 20000101, end: 20040101
  2. LANOXIN [Concomitant]
     Route: 065
  3. COUMADIN [Concomitant]
     Route: 065
  4. TOPROL-XL [Concomitant]
     Route: 065
  5. BUMEX [Concomitant]
     Route: 065
  6. LEVOXYL [Concomitant]
     Route: 065

REACTIONS (3)
  - CARTILAGE INJURY [None]
  - CHOLELITHIASIS [None]
  - MYOCARDIAL INFARCTION [None]
